FAERS Safety Report 8431571-6 (Version None)
Quarter: 2012Q2

REPORT INFORMATION
  Report Type: 
  Country: None (occurrence: None)
  Receive Date: 20120607
  Receipt Date: 20120607
  Transmission Date: 20120825
  Serious: Yes (Disabling)
  Sender: FDA-Public Use
  Company Number: None

PATIENT
  Age: 66 Year
  Sex: Male
  Weight: 107.9561 kg

DRUGS (2)
  1. CIPRO [Suspect]
     Indication: BIOPSY PROSTATE
     Dosage: 500 2X DAILY (3 DAYS) ORAL
     Route: 048
     Dates: start: 20090324, end: 20090326
  2. CIPRO [Suspect]
     Indication: BIOPSY PROSTATE
     Dosage: 500 2X DAILY (7 DAYS) ORAL
     Route: 048
     Dates: start: 20090502, end: 20090508

REACTIONS (11)
  - TENDON DISORDER [None]
  - BALANCE DISORDER [None]
  - TINNITUS [None]
  - MUSCULAR WEAKNESS [None]
  - LOSS OF EMPLOYMENT [None]
  - INSOMNIA [None]
  - TRIGGER FINGER [None]
  - INTRACRANIAL PRESSURE INCREASED [None]
  - MEMORY IMPAIRMENT [None]
  - HYPERHIDROSIS [None]
  - ROTATOR CUFF REPAIR [None]
